FAERS Safety Report 8802944 (Version 1)
Quarter: 2012Q4

REPORT INFORMATION
  Report Type: 
  Country: DE (occurrence: DE)
  Receive Date: 20120922
  Receipt Date: 20120922
  Transmission Date: 20130627
  Serious: Yes (Death, Life-Threatening)
  Sender: FDA-Public Use
  Company Number: DE-B.I. PHARMACEUTICALS,INC./RIDGEFIELD-2012-DE-02233DE

PATIENT
  Age: 68 Year
  Sex: Male
  Weight: 70 kg

DRUGS (21)
  1. PRADAXA [Suspect]
     Indication: ATRIAL FIBRILLATION
     Dosage: 300 mg
     Route: 048
     Dates: start: 20120912, end: 20120912
  2. PRADAXA [Suspect]
     Indication: ATRIAL THROMBOSIS
  3. CLEXANE [Suspect]
     Indication: ATRIAL FIBRILLATION
     Dosage: 1.4 NR
     Route: 058
  4. CLEXANE [Suspect]
     Indication: ATRIAL THROMBOSIS
     Dosage: 1.4 NR
     Route: 058
  5. TAZOBAC [Concomitant]
     Dosage: 13.5 g
     Route: 042
  6. LASIX [Concomitant]
     Dosage: 120 mg
     Route: 042
  7. CONCOR [Concomitant]
     Dosage: 10 mg
     Route: 048
  8. KALINOR BRAUSE [Concomitant]
     Dosage: 1 anz
     Route: 048
  9. HCT [Concomitant]
     Dosage: 25 mg
     Route: 048
  10. ASS [Concomitant]
     Dosage: 100 mg
     Route: 048
  11. AMLODIPIN [Concomitant]
     Dosage: 5 mg
     Route: 048
  12. TOREM [Concomitant]
     Dosage: 40 mg
     Route: 048
  13. METFORMIN [Concomitant]
     Dosage: 1000 mg
     Route: 048
  14. FENOFIBRAT [Concomitant]
     Dosage: 400 mg
     Route: 048
  15. HALDOL [Concomitant]
  16. ACC [Concomitant]
     Dosage: 600 mg
     Route: 048
  17. PANTOZOL [Concomitant]
     Dosage: 40 mg
     Route: 048
  18. SYMBICORT [Concomitant]
     Dosage: 4 anz
     Route: 048
  19. PARACODEIN [Concomitant]
     Dosage: 2 anz
     Route: 048
  20. ATROVENT [Concomitant]
     Dosage: 3 anz
     Route: 055
  21. ALTINSULIN [Concomitant]
     Dosage: according blood sugar ({ 150 mg/dl)
     Route: 058

REACTIONS (2)
  - Haemorrhagic stroke [Fatal]
  - Coma [Fatal]
